FAERS Safety Report 4626068-5 (Version None)
Quarter: 2005Q2

REPORT INFORMATION
  Report Type: 
  Country: None (occurrence: None)
  Receive Date: 20050404
  Receipt Date: 20041117
  Transmission Date: 20051028
  Serious: Yes (Hospitalization)
  Sender: FDA-Public Use
  Company Number: US-MERCK-0411USA02901

PATIENT
  Age: 64 Year
  Sex: Female

DRUGS (6)
  1. VIOXX [Suspect]
     Route: 048
  2. [THERAPY UNSPECIFIED] [Concomitant]
     Route: 065
  3. ZOCOR [Concomitant]
     Route: 065
  4. NEXIUM [Concomitant]
     Route: 065
  5. NEURONTIN [Concomitant]
     Route: 065
  6. CALCIUM (UNSPECIFIED) [Concomitant]
     Route: 065

REACTIONS (1)
  - THROMBOSIS [None]
